FAERS Safety Report 15118887 (Version 3)
Quarter: 2018Q3

REPORT INFORMATION
  Report Type: Report from Study
  Country: DE (occurrence: DE)
  Receive Date: 20180709
  Receipt Date: 20180727
  Transmission Date: 20181010
  Serious: Yes (Other)
  Sender: FDA-Public Use
  Company Number: DE-ROCHE-2150613

PATIENT
  Sex: Male

DRUGS (7)
  1. RANIBIZUMAB. [Suspect]
     Active Substance: RANIBIZUMAB
     Dosage: RIGHT EYE
     Route: 065
     Dates: start: 20160204
  2. RANIBIZUMAB. [Suspect]
     Active Substance: RANIBIZUMAB
     Dosage: RIGHT EYE
     Route: 065
     Dates: start: 20160303
  3. RANIBIZUMAB. [Suspect]
     Active Substance: RANIBIZUMAB
     Indication: NEOVASCULAR AGE-RELATED MACULAR DEGENERATION
     Dosage: 0.5 MG, 1X, RIGHT EYE
     Route: 050
     Dates: start: 20160107
  4. RANIBIZUMAB. [Suspect]
     Active Substance: RANIBIZUMAB
     Dosage: 0.5 MG, 1X, LEFT EYE
     Route: 050
     Dates: start: 20160211
  5. RANIBIZUMAB. [Suspect]
     Active Substance: RANIBIZUMAB
     Dosage: 0.5 MG, 1X, RIGHT EYE (PRE?FILLED SYRINGE)?MOST RECENT DOSE: 01/AUG/2016
     Route: 050
     Dates: start: 20160801, end: 20160801
  6. RANIBIZUMAB. [Suspect]
     Active Substance: RANIBIZUMAB
     Dosage: 0.5 MG, 1X, LEFT EYE
     Route: 050
     Dates: start: 20160114
  7. RANIBIZUMAB. [Suspect]
     Active Substance: RANIBIZUMAB
     Dosage: 0.5 MG, 1X, LEFT EYE
     Route: 050
     Dates: start: 20160310

REACTIONS (4)
  - Detachment of retinal pigment epithelium [Recovered/Resolved]
  - Retinal pigment epithelial tear [Recovered/Resolved]
  - Ocular hypertension [Recovered/Resolved]
  - Retinal exudates [Not Recovered/Not Resolved]

NARRATIVE: CASE EVENT DATE: 20160926
